FAERS Safety Report 5681032-2 (Version None)
Quarter: 2008Q1

REPORT INFORMATION
  Report Type: 
  Country: None (occurrence: None)
  Receive Date: 20080326
  Receipt Date: 20080312
  Transmission Date: 20080703
  Serious: Yes (Hospitalization)
  Sender: FDA-Public Use
  Company Number: US-PFIZER INC-2008026433

PATIENT
  Sex: Male

DRUGS (2)
  1. CHANTIX [Suspect]
  2. ZYPREXA [Suspect]

REACTIONS (1)
  - MENTAL DISORDER [None]
